FAERS Safety Report 9010854 (Version 1)
Quarter: 2013Q1

REPORT INFORMATION
  Report Type: Spontaneous
  Country: CA (occurrence: CA)
  Receive Date: 20130111
  Receipt Date: 20130111
  Transmission Date: 20140127
  Serious: Yes (Congenital Anomaly, Other)
  Sender: FDA-Public Use
  Company Number: PHHY2013CA001881

PATIENT
  Sex: Male
  Weight: 2.4 kg

DRUGS (1)
  1. GILENYA [Suspect]
     Indication: MULTIPLE SCLEROSIS
     Route: 064

REACTIONS (3)
  - Talipes [Unknown]
  - Premature baby [Unknown]
  - Foetal exposure timing unspecified [Unknown]
